FAERS Safety Report 16709095 (Version 1)
Quarter: 2019Q3

REPORT INFORMATION
  Report Type: Report from Study
  Country: None (occurrence: AR)
  Receive Date: 20190816
  Receipt Date: 20190816
  Transmission Date: 20191004
  Serious: Yes (Other)
  Sender: FDA-Public Use
  Company Number: AR-ABBVIE-19K-007-2891020-00

PATIENT
  Age: 60 Year
  Sex: Male

DRUGS (1)
  1. HUMIRA [Suspect]
     Active Substance: ADALIMUMAB
     Indication: ANKYLOSING SPONDYLITIS
     Route: 058
     Dates: start: 20170319

REACTIONS (4)
  - Accident [Unknown]
  - Ligament sprain [Not Recovered/Not Resolved]
  - Traumatic haemorrhage [Unknown]
  - Hip fracture [Unknown]

NARRATIVE: CASE EVENT DATE: 201812
